FAERS Safety Report 18715580 (Version 3)
Quarter: 2021Q2

REPORT INFORMATION
  Report Type: Spontaneous
  Country: JP (occurrence: JP)
  Receive Date: 20210108
  Receipt Date: 20210517
  Transmission Date: 20210717
  Serious: Yes (Hospitalization, Other)
  Sender: FDA-Public Use
  Company Number: JP-BRISTOL-MYERS SQUIBB COMPANY-BMS-2021-001174

PATIENT
  Age: 73 Year
  Sex: Male
  Weight: 67.2 kg

DRUGS (8)
  1. FEBURIC [Concomitant]
     Active Substance: FEBUXOSTAT
     Indication: HYPERURICAEMIA
     Dosage: 20 MG, EVERYDAY
     Route: 048
     Dates: start: 20160302
  2. THYRADIN S [Concomitant]
     Active Substance: LEVOTHYROXINE SODIUM
     Indication: HYPOTHYROIDISM
     Dosage: 125 MICROGRAM, QD
     Route: 048
     Dates: start: 20170309
  3. LOPEMIN [Concomitant]
     Indication: DIARRHOEA
     Dosage: 1 MG, PRN
     Route: 048
     Dates: start: 20180130
  4. OPDIVO [Suspect]
     Active Substance: NIVOLUMAB
     Indication: METASTATIC RENAL CELL CARCINOMA
     Dosage: 240 MG, Q2W
     Route: 041
     Dates: start: 20190919, end: 20200910
  5. URSO [Concomitant]
     Active Substance: URSODIOL
     Indication: HEPATIC FUNCTION ABNORMAL
     Dosage: 100 MG, Q8H
     Route: 048
     Dates: start: 20160128
  6. CABOMETYX [Suspect]
     Active Substance: CABOZANTINIB S-MALATE
     Indication: METASTATIC RENAL CELL CARCINOMA
     Dosage: 40 MG, EVERYDAY
     Route: 048
     Dates: start: 20200925, end: 20201228
  7. AMLODIPINE [Concomitant]
     Active Substance: AMLODIPINE BESYLATE
     Indication: HYPERTENSION
     Dosage: 5 MG, EVERYDAY
     Route: 048
     Dates: start: 20160128
  8. HEPARINOID [Concomitant]
     Active Substance: CHONDROITIN SULFATE (BOVINE)
     Indication: PALMAR-PLANTAR ERYTHRODYSAESTHESIA SYNDROME
     Dosage: 2?3 TIMES/DAY, APPROPRIATE DOSE
     Route: 061
     Dates: start: 20160209

REACTIONS (7)
  - Duodenal ulcer perforation [Recovered/Resolved]
  - Diarrhoea [Unknown]
  - Back pain [Unknown]
  - Malaise [Unknown]
  - Stomatitis [Unknown]
  - Malignant neoplasm progression [Unknown]
  - Hypocalcaemia [Unknown]

NARRATIVE: CASE EVENT DATE: 20200916
